FAERS Safety Report 5608698-7 (Version None)
Quarter: 2008Q1

REPORT INFORMATION
  Report Type: 
  Country: None (occurrence: None)
  Receive Date: 20080131
  Receipt Date: 20080118
  Transmission Date: 20080703
  Serious: Yes (Hospitalization)
  Sender: FDA-Public Use
  Company Number: US-PFIZER INC-2008007693

PATIENT
  Sex: Female
  Weight: 72.6 kg

DRUGS (2)
  1. CHANTIX [Suspect]
     Indication: SMOKING CESSATION THERAPY
     Dates: start: 20080104, end: 20080109
  2. EFFEXOR [Concomitant]

REACTIONS (6)
  - ABDOMINAL PAIN [None]
  - BLOOD PRESSURE INCREASED [None]
  - DEHYDRATION [None]
  - NAUSEA [None]
  - PAIN [None]
  - VOMITING [None]
